FAERS Safety Report 6012439-1 (Version None)
Quarter: 2008Q4

REPORT INFORMATION
  Report Type: 
  Country: None (occurrence: None)
  Receive Date: 20081218
  Receipt Date: 20081209
  Transmission Date: 20090506
  Serious: Yes (Hospitalization, Other)
  Sender: FDA-Public Use
  Company Number: CA-ELI_LILLY_AND_COMPANY-CA200812002834

PATIENT
  Age: 57 Year
  Sex: Female

DRUGS (4)
  1. FORTEO [Suspect]
     Indication: OSTEOPOROSIS
     Dosage: 20 UCI, DAILY (1/D)
     Route: 058
     Dates: start: 20080103
  2. CALCIUM CARBONATE [Concomitant]
  3. VITAMIN D [Concomitant]
  4. TYLENOL (CAPLET) [Concomitant]
     Dosage: UNK, AS NEEDED

REACTIONS (3)
  - FALL [None]
  - FEMUR FRACTURE [None]
  - WRIST FRACTURE [None]
